FAERS Safety Report 14426295 (Version 1)
Quarter: 2018Q1

REPORT INFORMATION
  Report Type: Spontaneous
  Country: US (occurrence: US)
  Receive Date: 20180123
  Receipt Date: 20180123
  Transmission Date: 20180509
  Serious: No
  Sender: FDA-Public Use
  Company Number: US-ACTELION-A-NJ2018-166166

PATIENT
  Age: 70 Year
  Sex: Male

DRUGS (11)
  1. INTRON A [Concomitant]
     Active Substance: INTERFERON ALFA-2B
  2. METFORMIN [Concomitant]
     Active Substance: METFORMIN HYDROCHLORIDE
  3. ENTERIC ASPIRIN [Concomitant]
     Active Substance: ASPIRIN
  4. TARGRETIN [Concomitant]
     Active Substance: BEXAROTENE
  5. LIPITOR [Concomitant]
     Active Substance: ATORVASTATIN CALCIUM
  6. VALCHLOR [Suspect]
     Active Substance: MECHLORETHAMINE
     Indication: MYCOSIS FUNGOIDES
     Dosage: UNK
     Route: 061
     Dates: start: 20150325
  7. GLIMEPIRIDE. [Concomitant]
     Active Substance: GLIMEPIRIDE
  8. JANUVIA [Concomitant]
     Active Substance: SITAGLIPTIN PHOSPHATE
  9. LASIX [Concomitant]
     Active Substance: FUROSEMIDE
  10. NAPROXEN. [Concomitant]
     Active Substance: NAPROXEN
  11. COREG [Concomitant]
     Active Substance: CARVEDILOL

REACTIONS (1)
  - Expired product administered [Unknown]
